FAERS Safety Report 23427708 (Version 1)
Quarter: 2024Q1

REPORT INFORMATION
  Report Type: Spontaneous
  Country: US (occurrence: None)
  Receive Date: 20240120
  Receipt Date: 20240120
  Transmission Date: 20240410
  Serious: Yes (Disabling, Other)
  Sender: FDA-Public Use
  Company Number: None

PATIENT
  Age: 43 Year
  Sex: Female
  Weight: 131.85 kg

DRUGS (7)
  1. .DELTA.8-TETRAHYDROCANNABINOL\HERBALS [Suspect]
     Active Substance: .DELTA.8-TETRAHYDROCANNABINOL\HERBALS
  2. LEXAPRO [Concomitant]
     Active Substance: ESCITALOPRAM OXALATE
  3. VITAMIN D [Concomitant]
     Active Substance: VITAMIN D NOS
  4. METHYL [Concomitant]
  5. FOLATE SODIUM [Concomitant]
     Active Substance: FOLATE SODIUM
  6. UNSPECIFIED INGREDIENT [Concomitant]
     Active Substance: UNSPECIFIED INGREDIENT
  7. FISH OIL [Concomitant]

REACTIONS (15)
  - Panic attack [None]
  - Heart rate increased [None]
  - Paralysis [None]
  - Aphasia [None]
  - Dizziness [None]
  - Nausea [None]
  - Feeling abnormal [None]
  - Discomfort [None]
  - Hyperhidrosis [None]
  - Headache [None]
  - Abdominal discomfort [None]
  - Abnormal dreams [None]
  - Nightmare [None]
  - Disorientation [None]
  - Agoraphobia [None]

NARRATIVE: CASE EVENT DATE: 20240117
